FAERS Safety Report 20649348 (Version 1)
Quarter: 2022Q1

REPORT INFORMATION
  Report Type: Spontaneous
  Country: CN (occurrence: CN)
  Receive Date: 20220329
  Receipt Date: 20220329
  Transmission Date: 20220424
  Serious: Yes (Other)
  Sender: FDA-Public Use
  Company Number: CN-ABBVIE-22K-035-4335643-00

PATIENT
  Age: 97 Year
  Sex: Male
  Weight: 65 kg

DRUGS (1)
  1. VALPROATE SODIUM [Suspect]
     Active Substance: VALPROATE SODIUM
     Indication: Symptomatic treatment
     Route: 048
     Dates: start: 20200821, end: 20200917

REACTIONS (2)
  - Hyponatraemia [Recovering/Resolving]
  - Oedema peripheral [Recovering/Resolving]

NARRATIVE: CASE EVENT DATE: 20200910
